FAERS Safety Report 4289920-9 (Version None)
Quarter: 2004Q1

REPORT INFORMATION
  Report Type: 
  Country: None (occurrence: None)
  Receive Date: 20040209
  Receipt Date: 20040122
  Transmission Date: 20041129
  Serious: Yes (Hospitalization)
  Sender: FDA-Public Use
  Company Number: 169983

PATIENT
  Age: 45 Year
  Sex: Female
  Weight: 105.2345 kg

DRUGS (8)
  1. AVONEX [Suspect]
     Indication: MULTIPLE SCLEROSIS
     Dosage: 30 MCG QW IM
     Dates: start: 20000822
  2. AMBIEN [Concomitant]
  3. PEPCID [Concomitant]
  4. ASPIRIN [Concomitant]
  5. PREMARIN [Concomitant]
  6. IMITREX [Concomitant]
  7. NEURONTIN [Concomitant]
  8. SERZONE [Concomitant]

REACTIONS (4)
  - COLITIS ISCHAEMIC [None]
  - FATIGUE [None]
  - INTESTINAL ISCHAEMIA [None]
  - RED BLOOD CELL COUNT DECREASED [None]
